FAERS Safety Report 13562999 (Version 12)
Quarter: 2022Q2

REPORT INFORMATION
  Report Type: Report from Study
  Country: AU (occurrence: None)
  Receive Date: 20170519
  Receipt Date: 20220608
  Transmission Date: 20220721
  Serious: Yes (Hospitalization)
  Sender: FDA-Public Use
  Company Number: AU-ROCHE-1926028

PATIENT
  Age: 71 Year
  Sex: Male
  Weight: 87.6 kg

DRUGS (4)
  1. ATEZOLIZUMAB [Suspect]
     Active Substance: ATEZOLIZUMAB
     Indication: Malignant urinary tract neoplasm
     Dosage: DATE OF MOST RECENT DOSE PRIOR TO SYSTEMIC-IMMUNE ACTIVATION: 11/APR/2017.?DATE OF MOST RECENT DOSE
     Route: 041
     Dates: start: 20170411
  2. TELMISARTAN [Concomitant]
     Active Substance: TELMISARTAN
     Route: 048
  3. NILSTAT [Concomitant]
     Active Substance: NYSTATIN
     Indication: Oral candidiasis
     Dosage: LIQUID
     Route: 048
     Dates: start: 20170427
  4. TAXOL [Concomitant]
     Active Substance: PACLITAXEL

REACTIONS (2)
  - Systemic immune activation [Recovered/Resolved]
  - Pneumonitis [Recovered/Resolved]

NARRATIVE: CASE EVENT DATE: 20170424
